FAERS Safety Report 9814439 (Version 3)
Quarter: 2014Q1

REPORT INFORMATION
  Report Type: Report from Study
  Country: CA (occurrence: CA)
  Receive Date: 20140113
  Receipt Date: 20140130
  Transmission Date: 20141002
  Serious: Yes (Other)
  Sender: FDA-Public Use
  Company Number: PHHY2013CA147897

PATIENT
  Age: 87 Year
  Sex: Male

DRUGS (3)
  1. SANDOSTATIN LAR [Suspect]
     Indication: NEUROENDOCRINE TUMOUR
     Dosage: 30 MG, QMO
     Route: 030
     Dates: start: 20131109
  2. SANDOSTATIN (OCTREOTIDE ACETATE) [Suspect]
     Indication: NEUROENDOCRINE TUMOUR
     Dosage: 200 UG, TID
     Route: 058
     Dates: start: 20131210
  3. SANDOSTATIN (OCTREOTIDE ACETATE) [Suspect]
     Dosage: UNK UKN, UNK
     Route: 058
     Dates: start: 20131210

REACTIONS (5)
  - Blood pressure diastolic decreased [Unknown]
  - Dementia [Unknown]
  - Confusional state [Unknown]
  - Anxiety [Unknown]
  - Blood glucose decreased [Unknown]
